FAERS Safety Report 6562103-5 (Version None)
Quarter: 2010Q1

REPORT INFORMATION
  Report Type: 
  Country: None (occurrence: None)
  Receive Date: 20100130
  Receipt Date: 20091106
  Transmission Date: 20100710
  Serious: No
  Sender: FDA-Public Use
  Company Number: US-ABBOTT-09P-163-0604845-00

PATIENT
  Sex: Female
  Weight: 87.622 kg

DRUGS (2)
  1. HUMIRA [Suspect]
     Indication: RHEUMATOID ARTHRITIS
     Route: 058
     Dates: start: 20090820
  2. LYRICA [Concomitant]
     Indication: FIBROMYALGIA

REACTIONS (4)
  - BONE PAIN [None]
  - HYPOAESTHESIA ORAL [None]
  - OROPHARYNGEAL BLISTERING [None]
  - PAIN [None]
